FAERS Safety Report 6835371-X (Version None)
Quarter: 2010Q2

REPORT INFORMATION
  Report Type: 
  Country: None (occurrence: None)
  Receive Date: 20100520
  Receipt Date: 20091203
  Transmission Date: 20101027
  Serious: Yes (Other)
  Sender: FDA-Public Use
  Company Number: 2009214393

PATIENT
  Age: 69 Year
  Sex: Female
  Weight: 63 kg

DRUGS (3)
  1. PROVERA [Suspect]
     Indication: MENOPAUSE
     Dosage: 2.5 MG, ORAL
     Route: 048
     Dates: start: 19930524, end: 19991208
  2. PREMARIN [Suspect]
     Indication: MENOPAUSE
     Dosage: 0.625 MG
     Dates: start: 19930524, end: 19991208
  3. CYCRIN [Suspect]
     Indication: MENOPAUSE
     Dosage: 2.5 MG
     Dates: start: 19981219, end: 19990119

REACTIONS (1)
  - BREAST CANCER FEMALE [None]
